FAERS Safety Report 22290767 (Version 1)
Quarter: 2023Q2

REPORT INFORMATION
  Report Type: Report from Study
  Country: US (occurrence: US)
  Receive Date: 20230506
  Receipt Date: 20230506
  Transmission Date: 20230722
  Serious: Yes (Other)
  Sender: FDA-Public Use
  Company Number: US-ABBVIE-4337002

PATIENT
  Sex: Female
  Weight: 62 kg

DRUGS (3)
  1. HUMIRA [Suspect]
     Active Substance: ADALIMUMAB
     Indication: Rheumatoid arthritis
     Dosage: START DATE TEXT: 3 - 4 YEARS AGO
     Route: 058
     Dates: start: 2019
  2. MOBIC [Concomitant]
     Active Substance: MELOXICAM
     Indication: Product used for unknown indication
     Route: 065
  3. METHOTREXATE [Concomitant]
     Active Substance: METHOTREXATE
     Indication: Product used for unknown indication
     Route: 065

REACTIONS (9)
  - Breast cancer [Recovered/Resolved]
  - Gait disturbance [Not Recovered/Not Resolved]
  - Rheumatic disorder [Unknown]
  - Joint dislocation [Not Recovered/Not Resolved]
  - Pain [Not Recovered/Not Resolved]
  - COVID-19 [Recovered/Resolved]
  - Asthma [Recovered/Resolved]
  - COVID-19 [Recovered/Resolved]
  - Ligament sprain [Not Recovered/Not Resolved]

NARRATIVE: CASE EVENT DATE: 20190101
